FAERS Safety Report 17097204 (Version 1)
Quarter: 2019Q4

REPORT INFORMATION
  Report Type: Spontaneous
  Country: US (occurrence: US)
  Receive Date: 20191129
  Receipt Date: 20191129
  Transmission Date: 20200122
  Serious: Yes (Hospitalization)
  Sender: FDA-Public Use
  Company Number: None

PATIENT
  Age: 72 Year
  Sex: Female
  Weight: 59.85 kg

DRUGS (11)
  1. BRIMONIDINE [Concomitant]
     Active Substance: BRIMONIDINE TARTRATE
  2. VITAMIN D3 [Concomitant]
     Active Substance: CHOLECALCIFEROL
  3. PREVACID [Concomitant]
     Active Substance: LANSOPRAZOLE
  4. IRBESARTAN. [Concomitant]
     Active Substance: IRBESARTAN
  5. ASMANEX [Concomitant]
     Active Substance: MOMETASONE FUROATE
  6. TRIAMETERENE HCTZ [Concomitant]
  7. LEVOTHYROXIN [Concomitant]
     Active Substance: LEVOTHYROXINE
  8. AZELASTINE. [Concomitant]
     Active Substance: AZELASTINE HYDROCHLORIDE
  9. PENNSAID [Suspect]
     Active Substance: DICLOFENAC SODIUM
     Indication: NECK PAIN
     Dosage: ?          QUANTITY:1 GEL TOPICAL;?
     Route: 061
     Dates: start: 20191120, end: 20191120
  10. DORZOLAMIDE-TIMOLOL EYE DROPS [Concomitant]
  11. TRAVATAN Z EYE DROPS [Concomitant]

REACTIONS (2)
  - Myocardial infarction [None]
  - Stress cardiomyopathy [None]

NARRATIVE: CASE EVENT DATE: 20191120
